FAERS Safety Report 6374140-4 (Version None)
Quarter: 2009Q3

REPORT INFORMATION
  Report Type: 
  Country: None (occurrence: None)
  Receive Date: 20090924
  Receipt Date: 20090619
  Transmission Date: 20100115
  Serious: No
  Sender: FDA-Public Use
  Company Number: US-ASTRAZENECA-2009UW16270

PATIENT
  Age: 27 Year
  Sex: Female
  Weight: 61.2 kg

DRUGS (3)
  1. SEROQUEL [Suspect]
     Route: 048
     Dates: start: 20090101
  2. DILAUDID [Concomitant]
     Indication: PAIN
  3. HYDROCODONE [Concomitant]
     Indication: PAIN

REACTIONS (1)
  - DRUG SCREEN POSITIVE [None]
